FAERS Safety Report 10061388 (Version 1)
Quarter: 2014Q2

REPORT INFORMATION
  Report Type: Spontaneous
  Country: BR (occurrence: BR)
  Receive Date: 20140407
  Receipt Date: 20140407
  Transmission Date: 20141212
  Serious: Yes (Hospitalization, Other)
  Sender: FDA-Public Use
  Company Number: BR-JNJFOC-20140400693

PATIENT
  Sex: Male
  Weight: 99 kg

DRUGS (4)
  1. REMICADE [Suspect]
     Indication: PSORIATIC ARTHROPATHY
     Route: 042
     Dates: start: 2012
  2. MAREVAN [Concomitant]
     Indication: ANTICOAGULANT THERAPY
     Route: 065
  3. DAFLON [Concomitant]
     Indication: ANTICOAGULANT THERAPY
     Route: 065
  4. COLCHICINE [Concomitant]
     Indication: ANTIINFLAMMATORY THERAPY
     Route: 065
     Dates: end: 20140328

REACTIONS (4)
  - Thrombosis [Recovering/Resolving]
  - Pulmonary embolism [Recovering/Resolving]
  - Blood cholesterol increased [Unknown]
  - Blood uric acid increased [Unknown]
